FAERS Safety Report 23215767 (Version 1)
Quarter: 2023Q4

REPORT INFORMATION
  Report Type: Spontaneous
  Country: CN (occurrence: CN)
  Receive Date: 20231122
  Receipt Date: 20231122
  Transmission Date: 20240110
  Serious: Yes (Other)
  Sender: FDA-Public Use
  Company Number: CN-SA-SAC20231117001094

PATIENT
  Age: 85 Year
  Sex: Male
  Weight: 68 kg

DRUGS (4)
  1. ENOXAPARIN SODIUM [Suspect]
     Active Substance: ENOXAPARIN SODIUM
     Indication: Cerebral infarction
     Dosage: 0.2 ML, BID
     Route: 058
     Dates: start: 20230516, end: 20230523
  2. ENOXAPARIN SODIUM [Suspect]
     Active Substance: ENOXAPARIN SODIUM
     Indication: Syncope
  3. RIVAROXABAN [Suspect]
     Active Substance: RIVAROXABAN
     Indication: Cerebral infarction
     Dosage: 10 MG, QD
     Route: 048
     Dates: start: 20230511, end: 20230516
  4. RIVAROXABAN [Suspect]
     Active Substance: RIVAROXABAN
     Indication: Syncope

REACTIONS (5)
  - Embolism venous [Recovering/Resolving]
  - Muscle haemorrhage [Recovering/Resolving]
  - Musculoskeletal pain [Recovering/Resolving]
  - Ecchymosis [Recovering/Resolving]
  - Haematoma [Recovering/Resolving]

NARRATIVE: CASE EVENT DATE: 20230523
